FAERS Safety Report 18392006 (Version 1)
Quarter: 2020Q4

REPORT INFORMATION
  Report Type: Spontaneous
  Country: US (occurrence: US)
  Receive Date: 20201015
  Receipt Date: 20201015
  Transmission Date: 20210114
  Serious: Yes (Hospitalization)
  Sender: FDA-Public Use
  Company Number: None

PATIENT
  Age: 63 Year
  Sex: Male

DRUGS (7)
  1. METHOCARBAM [Concomitant]
     Active Substance: METHOCARBAMOL
  2. ZYTIGA [Suspect]
     Active Substance: ABIRATERONE ACETATE
     Indication: PROSTATE CANCER
     Route: 048
     Dates: start: 20200128
  3. DEXAMETHASON [Concomitant]
     Active Substance: DEXAMETHASONE
  4. PREDNISONE. [Concomitant]
     Active Substance: PREDNISONE
  5. PROCHLORPER [Concomitant]
  6. MIRTAZAPINE. [Concomitant]
     Active Substance: MIRTAZAPINE
  7. BICALUTAMIDE. [Concomitant]
     Active Substance: BICALUTAMIDE

REACTIONS (2)
  - Dehydration [None]
  - Nausea [None]

NARRATIVE: CASE EVENT DATE: 20201013
